FAERS Safety Report 4903881-8 (Version None)
Quarter: 2006Q1

REPORT INFORMATION
  Report Type: 
  Country: None (occurrence: None)
  Receive Date: 20060113
  Receipt Date: 20051126
  Transmission Date: 20060701
  Serious: No
  Sender: FDA-Public Use
  Company Number: 2005SP004151

PATIENT
  Age: 78 Year
  Sex: Female
  Weight: 64.4108 kg

DRUGS (4)
  1. LUNESTA [Suspect]
     Indication: INSOMNIA
     Dosage: 1 MG; HS; ORAL
     Route: 048
     Dates: start: 20051123, end: 20051123
  2. PULMICORT [Concomitant]
  3. PRILOSEC [Concomitant]
  4. THEROVENT [Concomitant]

REACTIONS (1)
  - DYSGEUSIA [None]
